FAERS Safety Report 5707602-0 (Version None)
Quarter: 2008Q2

REPORT INFORMATION
  Report Type: 
  Country: None (occurrence: None)
  Receive Date: 20080409
  Receipt Date: 20071113
  Transmission Date: 20081010
  Serious: Yes (Other)
  Sender: FDA-Public Use
  Company Number: 42710

PATIENT
  Age: 39 Year
  Sex: Male

DRUGS (3)
  1. PHENTOLAMINE MESYLATE [Suspect]
     Indication: ERECTILE DYSFUNCTION
     Dates: start: 20071029
  2. PAPAVERINE [Suspect]
     Indication: ERECTILE DYSFUNCTION
     Dates: start: 20071029
  3. REFER TO BED-17659-AE. [Concomitant]

REACTIONS (1)
  - DRUG INEFFECTIVE [None]
